FAERS Safety Report 8785890 (Version 3)
Quarter: 2015Q3

REPORT INFORMATION
  Report Type: Report from Study
  Country: US (occurrence: US)
  Receive Date: 20120914
  Receipt Date: 20150707
  Transmission Date: 20151125
  Serious: Yes (Death)
  Sender: FDA-Public Use
  Company Number: US-ROCHE-1123135

PATIENT
  Sex: Male
  Weight: 78.09 kg

DRUGS (13)
  1. CARBOPLATIN. [Concomitant]
     Active Substance: CARBOPLATIN
     Route: 042
  2. CARBOPLATIN. [Concomitant]
     Active Substance: CARBOPLATIN
     Route: 042
  3. DECADRON [Concomitant]
     Active Substance: DEXAMETHASONE
     Route: 048
  4. AVASTIN [Suspect]
     Active Substance: BEVACIZUMAB
     Indication: BRAIN NEOPLASM MALIGNANT
     Route: 042
  5. CAMPTOSAR [Concomitant]
     Active Substance: IRINOTECAN HYDROCHLORIDE
     Route: 042
  6. CAMPTOSAR [Concomitant]
     Active Substance: IRINOTECAN HYDROCHLORIDE
     Route: 042
  7. KYTRIL [Concomitant]
     Active Substance: GRANISETRON HYDROCHLORIDE
     Route: 065
  8. AVASTIN [Suspect]
     Active Substance: BEVACIZUMAB
     Indication: MALIGNANT GLIOMA
     Route: 042
     Dates: start: 2007
  9. ALOXI [Concomitant]
     Active Substance: PALONOSETRON HYDROCHLORIDE
     Route: 042
  10. DECADRON [Concomitant]
     Active Substance: DEXAMETHASONE
     Route: 042
  11. ATROPINE. [Concomitant]
     Active Substance: ATROPINE
     Route: 042
  12. DECADRON [Concomitant]
     Active Substance: DEXAMETHASONE
     Route: 048
  13. ATIVAN [Concomitant]
     Active Substance: LORAZEPAM
     Route: 042

REACTIONS (2)
  - Disease progression [Fatal]
  - Visual impairment [Unknown]
